FAERS Safety Report 18391280 (Version 1)
Quarter: 2020Q4

REPORT INFORMATION
  Report Type: Report from Study
  Country: US (occurrence: US)
  Receive Date: 20201016
  Receipt Date: 20201016
  Transmission Date: 20210114
  Serious: Yes (Hospitalization, Other)
  Sender: FDA-Public Use
  Company Number: US-TEVA-2020-US-1823322

PATIENT
  Age: 82 Year
  Sex: Female

DRUGS (1)
  1. AUSTEDO [Suspect]
     Active Substance: DEUTETRABENAZINE
     Indication: TARDIVE DYSKINESIA
     Dosage: TOOK TWO 12 MG TABLETS
     Route: 065
     Dates: start: 20200927, end: 20200927

REACTIONS (10)
  - Cough [Unknown]
  - Diarrhoea [Unknown]
  - Malaise [Not Recovered/Not Resolved]
  - Hypersomnia [Unknown]
  - Insomnia [Unknown]
  - Vomiting [Recovered/Resolved]
  - Urinary tract infection [Recovered/Resolved]
  - Adverse drug reaction [Unknown]
  - Fatigue [Unknown]
  - Internal haemorrhage [Unknown]

NARRATIVE: CASE EVENT DATE: 2020
